FAERS Safety Report 17184460 (Version 4)
Quarter: 2020Q1

REPORT INFORMATION
  Report Type: Spontaneous
  Country: US (occurrence: US)
  Receive Date: 20191220
  Receipt Date: 20200227
  Transmission Date: 20200409
  Serious: Yes (Hospitalization, Other)
  Sender: FDA-Public Use
  Company Number: US-PFIZER INC-2019548678

PATIENT
  Age: 72 Year
  Sex: Female
  Weight: 92.97 kg

DRUGS (2)
  1. XELJANZ [Concomitant]
     Active Substance: TOFACITINIB CITRATE
     Dosage: UNK
     Dates: start: 2019
  2. METHOTREXATE SODIUM. [Suspect]
     Active Substance: METHOTREXATE SODIUM
     Indication: RHEUMATOID ARTHRITIS
     Dosage: 17.5 MG, WEEKLY [2.5 MG 7 PILLS ONCE A WEEK]
     Dates: end: 20190828

REACTIONS (13)
  - Coma [Unknown]
  - Posterior reversible encephalopathy syndrome [Unknown]
  - Diplopia [Unknown]
  - Pneumonia [Unknown]
  - Feeding disorder [Not Recovered/Not Resolved]
  - Seizure [Unknown]
  - Immune system disorder [Not Recovered/Not Resolved]
  - Drug hypersensitivity [Unknown]
  - Hallucination [Unknown]
  - Loss of consciousness [Unknown]
  - Gait inability [Not Recovered/Not Resolved]
  - Hypertension [Unknown]
  - Headache [Unknown]

NARRATIVE: CASE EVENT DATE: 201908
